FAERS Safety Report 5428049-0 (Version None)
Quarter: 2007Q3

REPORT INFORMATION
  Report Type: 
  Country: None (occurrence: None)
  Receive Date: 20070828
  Receipt Date: 20070821
  Transmission Date: 20080115
  Serious: Yes (Other)
  Sender: FDA-Public Use
  Company Number: JP-ROXANE LABORATORIES, INC-2007-BP-19639RO

PATIENT
  Age: 32 Month
  Sex: Male

DRUGS (5)
  1. ZONISAMIDE [Suspect]
     Indication: CONVULSION
  2. DIAZEPAM [Suspect]
     Indication: STATUS EPILEPTICUS
     Route: 042
  3. PHENOBARBITAL TAB [Suspect]
     Indication: CONVULSION
  4. PHENYTOIN [Suspect]
     Indication: CONVULSION
  5. VALPROATE SODIUM [Suspect]
     Indication: CONVULSION
     Dates: start: 19990301, end: 20021001

REACTIONS (7)
  - CONVULSION [None]
  - DRUG HYPERSENSITIVITY [None]
  - DRUG INEFFECTIVE [None]
  - PYREXIA [None]
  - RASH MACULO-PAPULAR [None]
  - STATUS EPILEPTICUS [None]
  - TRANSIENT HYPOGAMMAGLOBULINAEMIA OF INFANCY [None]
